FAERS Safety Report 8963507 (Version 3)
Quarter: 2013Q1

REPORT INFORMATION
  Report Type: Spontaneous
  Country: FR (occurrence: FR)
  Receive Date: 20121214
  Receipt Date: 20130119
  Transmission Date: 20140127
  Serious: Yes (Congenital Anomaly, Other)
  Sender: FDA-Public Use
  Company Number: FR-AMGEN-FRASP2012079753

PATIENT
  Age: 6 Month
  Sex: Female

DRUGS (7)
  1. ARANESP [Suspect]
     Dosage: 0.0021MG (0.06 MG, 1 IN 28 DAYS)
     Route: 064
     Dates: start: 20111219, end: 20120222
  2. ARANESP [Suspect]
     Dosage: 0.0021MG (0.06 MG, 1 IN 28 DAYS)
     Route: 064
     Dates: start: 20111219, end: 20120222
  3. FERINJECT [Concomitant]
     Dosage: 500 MG, 1 IN 28 DAYS
     Route: 064
     Dates: start: 20111219, end: 20120116
  4. GUTRON [Concomitant]
     Dosage: 2.5 MG, UNK
     Route: 064
     Dates: end: 20111118
  5. TAREG [Concomitant]
     Dosage: 40 MG, UNK
     Route: 064
     Dates: end: 20111118
  6. PROZAC [Concomitant]
     Dosage: 20 MG, UNK
     Route: 064
     Dates: end: 20111118
  7. SPECIAFOLDINE [Concomitant]
     Dosage: 0.4 MG, UNK
     Route: 064
     Dates: end: 20111118

REACTIONS (4)
  - Caudal regression syndrome [Not Recovered/Not Resolved]
  - Single functional kidney [Unknown]
  - Premature baby [Unknown]
  - Foetal growth restriction [Unknown]
